FAERS Safety Report 10888765 (Version 1)
Quarter: 2015Q1

REPORT INFORMATION
  Report Type: Spontaneous
  Country: US (occurrence: US)
  Receive Date: 20150305
  Receipt Date: 20150305
  Transmission Date: 20150721
  Serious: No
  Sender: FDA-Public Use
  Company Number: US-ASTRAZENECA-2015SE19821

PATIENT
  Sex: Male
  Weight: 108 kg

DRUGS (9)
  1. NEXIUM [Suspect]
     Active Substance: ESOMEPRAZOLE MAGNESIUM
     Indication: DYSPEPSIA
     Route: 048
  2. NEURONTIN [Concomitant]
     Active Substance: GABAPENTIN
     Indication: PAIN
  3. XANAX [Concomitant]
     Active Substance: ALPRAZOLAM
     Indication: PAIN
  4. TRICOR [Concomitant]
     Active Substance: FENOFIBRATE
     Indication: BLOOD CHOLESTEROL
  5. NEXIUM [Suspect]
     Active Substance: ESOMEPRAZOLE MAGNESIUM
     Indication: DYSPEPSIA
     Route: 048
     Dates: start: 20150223
  6. XANAX [Concomitant]
     Active Substance: ALPRAZOLAM
     Indication: ANXIETY
  7. MULTIVITAMIN [Concomitant]
     Active Substance: VITAMINS
     Indication: NO ADVERSE EVENT
  8. OXYCODONE [Concomitant]
     Active Substance: OXYCODONE
     Indication: PAIN
  9. QUETIAPINE FUMARATE. [Suspect]
     Active Substance: QUETIAPINE FUMARATE
     Indication: SLEEP DISORDER
     Route: 048

REACTIONS (4)
  - Intentional product use issue [Unknown]
  - Vomiting [Unknown]
  - Dyspepsia [Unknown]
  - Intentional product misuse [Unknown]
